FAERS Safety Report 4330907-5 (Version None)
Quarter: 2004Q1

REPORT INFORMATION
  Report Type: 
  Country: None (occurrence: None)
  Receive Date: 20040331
  Receipt Date: 20040315
  Transmission Date: 20041129
  Serious: Yes (Other)
  Sender: FDA-Public Use
  Company Number: USA040258448

PATIENT
  Age: 71 Year
  Sex: Female

DRUGS (4)
  1. EVISTA [Suspect]
     Indication: OSTEOPOROSIS
     Dosage: 60  MG/1 DAY
     Dates: start: 20010101, end: 20040201
  2. DIOVAN [Concomitant]
  3. NEXIUM [Concomitant]
  4. VIOXX [Concomitant]

REACTIONS (9)
  - DIPLOPIA [None]
  - EXTRAOCULAR MUSCLE PARESIS [None]
  - HOT FLUSH [None]
  - MUSCLE FATIGUE [None]
  - PHOTOPHOBIA [None]
  - PLATELET COUNT INCREASED [None]
  - RED BLOOD CELL SEDIMENTATION RATE INCREASED [None]
  - STRESS SYMPTOMS [None]
  - VITH NERVE DISORDER [None]
